FAERS Safety Report 15656005 (Version 1)
Quarter: 2018Q4

REPORT INFORMATION
  Report Type: Spontaneous
  Country: US (occurrence: US)
  Receive Date: 20181126
  Receipt Date: 20181126
  Transmission Date: 20190205
  Serious: No
  Sender: FDA-Public Use
  Company Number: US-GLAXOSMITHKLINE-US2018209097

PATIENT
  Age: 42 Year
  Sex: Male

DRUGS (2)
  1. ALLI [Suspect]
     Active Substance: ORLISTAT
     Dosage: 1 UNK, TID
     Route: 048
  2. ALLI [Suspect]
     Active Substance: ORLISTAT
     Indication: PRODUCT USED FOR UNKNOWN INDICATION
     Dosage: 1 UNK, TID
     Route: 048
     Dates: start: 20181020, end: 20181113

REACTIONS (3)
  - Abdominal distension [Recovered/Resolved]
  - Steatorrhoea [Recovered/Resolved]
  - Abdominal discomfort [Recovered/Resolved]
